FAERS Safety Report 9237618 (Version 1)
Quarter: 2013Q2

REPORT INFORMATION
  Report Type: Spontaneous
  Country: DE (occurrence: DE)
  Receive Date: 20130418
  Receipt Date: 20130418
  Transmission Date: 20140414
  Serious: Yes (Hospitalization)
  Sender: FDA-Public Use
  Company Number: DE-BIOGENIDEC-2013BI033113

PATIENT
  Age: 41 Year
  Sex: Female

DRUGS (3)
  1. TYSABRI [Suspect]
     Indication: MULTIPLE SCLEROSIS
     Route: 042
     Dates: start: 201101
  2. PREGABALIN [Concomitant]
     Indication: PAIN
     Dates: start: 201105
  3. BACLOFEN [Concomitant]
     Indication: MUSCLE SPASTICITY
     Dates: start: 201201

REACTIONS (1)
  - Abortion missed [Recovered/Resolved]
